FAERS Safety Report 19039264 (Version 1)
Quarter: 2021Q1

REPORT INFORMATION
  Report Type: Report from Study
  Country: DE (occurrence: DE)
  Receive Date: 20210322
  Receipt Date: 20210322
  Transmission Date: 20210420
  Serious: Yes (Life-Threatening, Hospitalization)
  Sender: FDA-Public Use
  Company Number: DE-SHIRE-DE201924176

PATIENT
  Age: 9 Year
  Sex: Female

DRUGS (20)
  1. FUROSEMIDE. [Concomitant]
     Active Substance: FUROSEMIDE
     Indication: DISEASE COMPLICATION
  2. NEFROCARNIT [Concomitant]
     Indication: PRODUCT USED FOR UNKNOWN INDICATION
  3. ERYTHROPOIETIN [Concomitant]
     Active Substance: ERYTHROPOIETIN
     Indication: PRODUCT USED FOR UNKNOWN INDICATION
  4. ZINKOROT [Concomitant]
     Active Substance: ZINC OROTATE
     Indication: PRODUCT USED FOR UNKNOWN INDICATION
  5. OMNITROPE [Concomitant]
     Active Substance: SOMATROPIN
     Indication: FAILURE TO THRIVE
  6. VITADRAL [Concomitant]
     Indication: PRODUCT USED FOR UNKNOWN INDICATION
  7. CREON [Concomitant]
     Active Substance: PANCRELIPASE AMYLASE\PANCRELIPASE LIPASE\PANCRELIPASE PROTEASE
     Indication: PANCREATIC FAILURE
  8. TEDUGLUTIDE [Suspect]
     Active Substance: TEDUGLUTIDE
     Indication: SHORT-BOWEL SYNDROME
     Dosage: 0.8 MILLIGRAM, 1X/DAY:QD
     Route: 065
     Dates: start: 20171001
  9. DECOSTRIOL [Concomitant]
     Active Substance: CALCITRIOL
     Indication: PRODUCT USED FOR UNKNOWN INDICATION
  10. TEDUGLUTIDE [Suspect]
     Active Substance: TEDUGLUTIDE
     Indication: SHORT-BOWEL SYNDROME
     Dosage: 0.8 MILLIGRAM, 1X/DAY:QD
     Route: 065
     Dates: start: 20171001
  11. TEDUGLUTIDE [Suspect]
     Active Substance: TEDUGLUTIDE
     Indication: SHORT-BOWEL SYNDROME
     Dosage: 0.8 MILLIGRAM, 1X/DAY:QD
     Route: 065
     Dates: start: 20171001
  12. FERRLECIT 2 [Concomitant]
     Indication: IRON DEFICIENCY ANAEMIA
  13. FLUCLOXACILLIN [Concomitant]
     Active Substance: FLUCLOXACILLIN
     Indication: SEPSIS
  14. TEDUGLUTIDE [Suspect]
     Active Substance: TEDUGLUTIDE
     Indication: SHORT-BOWEL SYNDROME
     Dosage: 0.8 MILLIGRAM, 1X/DAY:QD
     Route: 065
     Dates: start: 20171001
  15. OCTENISAN [ALLANTOIN;OCTENIDINE HYDROCHLORIDE] [Concomitant]
     Indication: WOUND TREATMENT
  16. AMPHO?MORONAL [Concomitant]
     Active Substance: AMPHOTERICIN B
     Indication: PRODUCT USED FOR UNKNOWN INDICATION
  17. NACL [Concomitant]
     Active Substance: SODIUM CHLORIDE
     Indication: PRODUCT USED FOR UNKNOWN INDICATION
  18. HEPARIN [Concomitant]
     Active Substance: HEPARIN SODIUM
     Indication: ANTICOAGULANT THERAPY
  19. ERYTHROPOETIN [EPOETIN ALFA] [Concomitant]
     Indication: ANAEMIA
  20. PRONTOSAN [POLIHEXANIDE] [Concomitant]
     Active Substance: POLIHEXANIDE
     Indication: WOUND TREATMENT

REACTIONS (2)
  - Systemic infection [Recovered/Resolved]
  - Neutropenia [Recovered/Resolved]

NARRATIVE: CASE EVENT DATE: 20190701
